FAERS Safety Report 10024438 (Version 3)
Quarter: 2014Q2

REPORT INFORMATION
  Report Type: Spontaneous
  Country: US (occurrence: US)
  Receive Date: 20140320
  Receipt Date: 20140408
  Transmission Date: 20141212
  Serious: No
  Sender: FDA-Public Use
  Company Number: US-TEVA-470025USA

PATIENT
  Age: 37 Year
  Sex: Female
  Weight: 56.75 kg

DRUGS (2)
  1. PARAGARD 380A [Suspect]
     Indication: CONTRACEPTION
     Route: 015
     Dates: start: 20140224, end: 20140224
  2. MIRENA [Concomitant]
     Indication: CONTRACEPTION
     Route: 015
     Dates: end: 20140224

REACTIONS (3)
  - Anxiety [Recovered/Resolved]
  - Complication of device insertion [Recovered/Resolved]
  - Pain [Recovered/Resolved]
